FAERS Safety Report 6668388-9 (Version None)
Quarter: 2010Q2

REPORT INFORMATION
  Report Type: 
  Country: None (occurrence: None)
  Receive Date: 20100406
  Receipt Date: 20100322
  Transmission Date: 20101027
  Serious: Yes (Other)
  Sender: FDA-Public Use
  Company Number: PHHY2010US18111

PATIENT
  Sex: Male

DRUGS (1)
  1. EXJADE [Suspect]
     Dosage: 625 MG DAILY
     Route: 048
     Dates: start: 20080515, end: 20100203

REACTIONS (2)
  - HEPATIC ENZYME INCREASED [None]
  - TRANSPLANT [None]
